FAERS Safety Report 7282338-6 (Version None)
Quarter: 2011Q1

REPORT INFORMATION
  Report Type: 
  Country: None (occurrence: None)
  Receive Date: 20110209
  Receipt Date: 20110201
  Transmission Date: 20110831
  Serious: Yes (Hospitalization, Other)
  Sender: FDA-Public Use
  Company Number: US-TEVA-265568USA

PATIENT
  Age: 40 Year
  Sex: Female

DRUGS (3)
  1. DEXAMETHASONE [Concomitant]
  2. LAMOTRIGINE [Suspect]
  3. FAMOTIDINE [Concomitant]

REACTIONS (5)
  - INTENTIONAL OVERDOSE [None]
  - MUTISM [None]
  - TREMOR [None]
  - DELIRIUM [None]
  - ENCEPHALOPATHY [None]
